FAERS Safety Report 5220130-4 (Version None)
Quarter: 2006Q4

REPORT INFORMATION
  Report Type: 
  Country: None (occurrence: None)
  Receive Date: 20061121
  Receipt Date: 20060815
  Transmission Date: 20070319
  Serious: No
  Sender: FDA-Public Use
  Company Number: TPA2006A01365

PATIENT
  Sex: 0

DRUGS (3)
  1. ROZEREM [Suspect]
     Indication: DRUG USE FOR UNKNOWN INDICATION
     Dosage: 8 MG, UNKNOWN, PER ORAL
     Route: 048
  2. UNKNOWN HYPERTENSIVE MEDICATIONS (ALL OTHER THERAPEUTIC PRODUCTS) [Concomitant]
  3. UNKNOWN MEDICATIONS (ALL OTHER THERAPEUTIC PRODUCTS) [Concomitant]

REACTIONS (1)
  - SOMNOLENCE [None]
